FAERS Safety Report 26071427 (Version 1)
Quarter: 2025Q4

REPORT INFORMATION
  Report Type: Spontaneous
  Country: US (occurrence: US)
  Receive Date: 20251120
  Receipt Date: 20251120
  Transmission Date: 20260118
  Serious: No
  Sender: JOHNSON AND JOHNSON
  Company Number: US-JNJFOC-20251158782

PATIENT
  Age: 6 Year
  Sex: Male

DRUGS (1)
  1. RISPERDAL [Suspect]
     Active Substance: RISPERIDONE
     Indication: Behaviour disorder
     Dosage: VARYING DOES OF 1 MG AND 2 MG
     Route: 048
     Dates: start: 201106

REACTIONS (2)
  - Weight increased [Unknown]
  - Increased appetite [Unknown]

NARRATIVE: CASE EVENT DATE: 20110701
